FAERS Safety Report 25268402 (Version 1)
Quarter: 2025Q2

REPORT INFORMATION
  Report Type: Spontaneous
  Country: US (occurrence: None)
  Receive Date: 20250502
  Receipt Date: 20250502
  Transmission Date: 20250717
  Serious: Yes (Hospitalization)
  Sender: FDA-CTU
  Company Number: None

PATIENT
  Age: 89 Year
  Sex: Female

DRUGS (1)
  1. NUPLAZID [Suspect]
     Active Substance: PIMAVANSERIN TARTRATE
     Indication: Parkinson^s disease
     Dosage: 34 MG DAILY ORAL
     Route: 048
     Dates: start: 20220406

REACTIONS (3)
  - Malaise [None]
  - Blood pressure decreased [None]
  - Decubitus ulcer [None]

NARRATIVE: CASE EVENT DATE: 20250410
